FAERS Safety Report 5131892-9 (Version None)
Quarter: 2006Q4

REPORT INFORMATION
  Report Type: 
  Country: None (occurrence: None)
  Receive Date: 20061016
  Receipt Date: 20061004
  Transmission Date: 20070319
  Serious: Yes (Hospitalization, Other)
  Sender: FDA-Public Use
  Company Number: 2006090487

PATIENT
  Age: 44 Year
  Sex: Female
  Weight: 92.5338 kg

DRUGS (13)
  1. CAMPOSTAR [Suspect]
     Indication: COLON CANCER
     Dosage: (235 MG, 1 IN 1 WK)
  2. AVASTIN [Suspect]
     Dosage: (430 MG, 1 IN 2 WK)
  3. SYNTHROID [Concomitant]
  4. PREMARIN [Concomitant]
  5. LIPITOR [Concomitant]
  6. NIFEREX (POLYSACCHARIDE-IRON COMPLEX) [Concomitant]
  7. NEXIUM [Concomitant]
  8. PROTONIX [Concomitant]
  9. LEXAPRO [Concomitant]
  10. AMBIEN [Concomitant]
  11. XANAX [Concomitant]
  12. FLUOROURACIL [Suspect]
  13. NITROGLYCERIN [Suspect]
     Indication: CHEST DISCOMFORT

REACTIONS (20)
  - ANXIETY [None]
  - BLOOD PRESSURE INCREASED [None]
  - BODY TEMPERATURE DECREASED [None]
  - BREATH SOUNDS ABNORMAL [None]
  - CARDIOTOXICITY [None]
  - CATHETER SITE PAIN [None]
  - CHEST DISCOMFORT [None]
  - CHEST PAIN [None]
  - CORONARY ARTERY DISEASE [None]
  - DRUG INEFFECTIVE [None]
  - EMOTIONAL DISORDER [None]
  - HEADACHE [None]
  - ILL-DEFINED DISORDER [None]
  - METASTASES TO OVARY [None]
  - PRINZMETAL ANGINA [None]
  - PROCEDURAL PAIN [None]
  - TEARFULNESS [None]
  - TORSADE DE POINTES [None]
  - VASOSPASM [None]
  - VENTRICULAR TACHYCARDIA [None]
